FAERS Safety Report 4425017-2 (Version None)
Quarter: 2004Q3

REPORT INFORMATION
  Report Type: 
  Country: None (occurrence: None)
  Receive Date: 20040813
  Receipt Date: 20040805
  Transmission Date: 20050211
  Serious: Yes (Death)
  Sender: FDA-Public Use
  Company Number: US-JNJFOC-20040500187

PATIENT
  Sex: Male
  Weight: 73.94 kg

DRUGS (1)
  1. DURAGESIC [Suspect]
     Indication: CANCER PAIN
     Route: 062
     Dates: start: 20031118, end: 20040405

REACTIONS (1)
  - CARDIO-RESPIRATORY ARREST [None]
